FAERS Safety Report 7524779-5 (Version None)
Quarter: 2011Q2

REPORT INFORMATION
  Report Type: 
  Country: None (occurrence: None)
  Receive Date: 20110606
  Receipt Date: 20110520
  Transmission Date: 20111010
  Serious: No
  Sender: FDA-Public Use
  Company Number: US-B.I. PHARMACEUTICALS,INC./RIDGEFIELD-2011-BP-13669BP

PATIENT
  Sex: Female

DRUGS (18)
  1. XANAX [Concomitant]
     Indication: ANXIETY
     Dosage: 1.25 MG
     Route: 048
  2. MULTI-VITAMIN [Concomitant]
     Route: 048
  3. PREMARIN [Concomitant]
     Route: 048
  4. CARDIZEM [Concomitant]
     Indication: ATRIAL FIBRILLATION
     Route: 048
  5. OXYCODONE HCL [Concomitant]
     Route: 048
  6. RANITIDINE [Concomitant]
     Indication: GASTROOESOPHAGEAL REFLUX DISEASE
     Route: 048
  7. CYCLOBENZAPRINE HCL [Concomitant]
     Route: 048
  8. VICODIN [Concomitant]
     Route: 048
  9. GLUCOSAMINE [Concomitant]
     Indication: ARTHRITIS
     Route: 048
  10. CAPTOPRIL [Concomitant]
     Route: 048
  11. CYMBALTA [Concomitant]
     Indication: DEPRESSION
     Dosage: 90 MG
     Route: 048
  12. BENTYL [Concomitant]
     Indication: IRRITABLE BOWEL SYNDROME
     Route: 048
  13. PRADAXA [Suspect]
     Indication: ATRIAL FIBRILLATION
     Dosage: 300 MG
     Route: 048
     Dates: start: 20110325
  14. ZOLOFT [Concomitant]
     Indication: DEPRESSION
     Route: 048
  15. TYLENOL-500 [Concomitant]
     Route: 048
  16. SYMBICORT [Concomitant]
     Indication: RHINITIS ALLERGIC
  17. VITAMIN D [Concomitant]
     Route: 048
  18. OXYBUTYNIN [Concomitant]
     Route: 048

REACTIONS (3)
  - OEDEMA PERIPHERAL [None]
  - EYE SWELLING [None]
  - ARTHRALGIA [None]
